FAERS Safety Report 6262163-5 (Version None)
Quarter: 2009Q3

REPORT INFORMATION
  Report Type: 
  Country: None (occurrence: None)
  Receive Date: 20090708
  Receipt Date: 20090708
  Transmission Date: 20100115
  Serious: Yes (Other)
  Sender: FDA-Public Use
  Company Number: None

PATIENT
  Age: 44 Year
  Sex: Male

DRUGS (1)
  1. TUBERCULIN PPD MANTOUX 5US UNITS PER TEST SANOFI PASTEUR [Suspect]
     Indication: TUBERCULIN TEST
     Dosage: 0.1 ML ONCE SUBDERMAL
     Route: 059
     Dates: start: 20090624, end: 20090624

REACTIONS (4)
  - OROPHARYNGEAL PAIN [None]
  - PRURITUS [None]
  - THROAT TIGHTNESS [None]
  - URTICARIA [None]
